FAERS Safety Report 7821548-3 (Version None)
Quarter: 2011Q4

REPORT INFORMATION
  Report Type: 
  Country: None (occurrence: None)
  Receive Date: 20111018
  Receipt Date: 20111012
  Transmission Date: 20120403
  Serious: Yes (Hospitalization)
  Sender: FDA-Public Use
  Company Number: NL-AMGEN-NLDNI2011032720

PATIENT
  Age: 51 Year
  Sex: Female

DRUGS (8)
  1. CYCLOPHOSPHAMIDE [Suspect]
     Dosage: 1000 MG, UNK
     Route: 042
     Dates: start: 20110321, end: 20110523
  2. ACETAMINOPHEN [Concomitant]
     Dosage: UNK UNK, PRN
     Dates: start: 20110323
  3. DOXORUBICIN HCL [Suspect]
     Dosage: 100 MG, UNK
     Route: 042
     Dates: start: 20110321, end: 20110523
  4. DEXAMETHASONE [Concomitant]
  5. DOCETAXEL [Suspect]
     Dosage: 150 MG, UNK
     Route: 042
     Dates: start: 20110321, end: 20110523
  6. ONDANSETRON [Concomitant]
  7. METOCLOPRAMIDE [Concomitant]
     Dosage: 10 MG, PRN
     Dates: start: 20110323
  8. NEULASTA [Suspect]
     Indication: CHEMOTHERAPY
     Dosage: 6 MG, Q3WK
     Route: 058
     Dates: start: 20110322

REACTIONS (3)
  - DYSPNOEA [None]
  - NAUSEA [None]
  - DIARRHOEA [None]
